FAERS Safety Report 17229384 (Version 1)
Quarter: 2020Q1

REPORT INFORMATION
  Report Type: Spontaneous
  Country: US (occurrence: US)
  Receive Date: 20200103
  Receipt Date: 20200103
  Transmission Date: 20200409
  Serious: No
  Sender: FDA-Public Use
  Company Number: US-MYLANLABS-2019M1131783

PATIENT
  Sex: Male
  Weight: 88 kg

DRUGS (1)
  1. SCOPOLAMINE TRANSDERMAL SYSTEM [Suspect]
     Active Substance: SCOPOLAMINE
     Indication: MOTION SICKNESS
     Dosage: BEHIND EAR EVERY THREE DAYS WHILE AT SEA
     Route: 062

REACTIONS (4)
  - Wrong technique in product usage process [Recovered/Resolved]
  - Malaise [Recovered/Resolved]
  - Product adhesion issue [Recovered/Resolved]
  - Drug ineffective [Unknown]
